FAERS Safety Report 5095850-5 (Version None)
Quarter: 2006Q3

REPORT INFORMATION
  Report Type: 
  Country: None (occurrence: None)
  Receive Date: 20060905
  Receipt Date: 20060614
  Transmission Date: 20061208
  Serious: Yes (Other)
  Sender: FDA-Public Use
  Company Number: PHEH2006US07809

PATIENT

DRUGS (2)
  1. EXJADE [Suspect]
     Indication: HAEMOSIDEROSIS
     Dosage: 1500 MG, QD
     Route: 048
  2. EXJADE [Suspect]
     Dosage: UNK MG, TWICE/WEEK
     Route: 048

REACTIONS (3)
  - ERYTHEMA MULTIFORME [None]
  - RASH ERYTHEMATOUS [None]
  - SKIN EXFOLIATION [None]
